FAERS Safety Report 5669726-6 (Version None)
Quarter: 2008Q1

REPORT INFORMATION
  Report Type: 
  Country: None (occurrence: None)
  Receive Date: 20080313
  Receipt Date: 20080313
  Transmission Date: 20080703
  Serious: Yes (Hospitalization)
  Sender: FDA-Public Use
  Company Number: None

PATIENT
  Age: 84 Year
  Sex: Male
  Weight: 78.02 kg

DRUGS (3)
  1. VORICONAZOLE [Suspect]
     Indication: SINUSITIS ASPERGILLUS
     Dosage: 200MG BID PO
     Route: 048
     Dates: start: 20070703, end: 20071205
  2. EZETIMIBE [Suspect]
     Indication: HYPERLIPIDAEMIA
     Dosage: 10MG EVERY DAY PO
     Route: 048
     Dates: start: 20071116, end: 20071205
  3. SIMVASTATIN [Suspect]
     Indication: HYPERLIPIDAEMIA
     Dosage: 80MG EVERY DAY PO
     Route: 048
     Dates: start: 20071116, end: 20071205

REACTIONS (2)
  - DRUG ADMINISTRATION ERROR [None]
  - RHABDOMYOLYSIS [None]
